FAERS Safety Report 13201756 (Version 1)
Quarter: 2017Q1

REPORT INFORMATION
  Report Type: Spontaneous
  Country: US (occurrence: US)
  Receive Date: 20170209
  Receipt Date: 20170209
  Transmission Date: 20170428
  Serious: No
  Sender: FDA-Public Use
  Company Number: US-ASTRAZENECA-2017SE11547

PATIENT
  Age: 846 Month
  Sex: Female
  Weight: 43.5 kg

DRUGS (10)
  1. CLONAZEPAM. [Concomitant]
     Active Substance: CLONAZEPAM
     Indication: FIBROMYALGIA
     Dosage: 1MG IN THE MORNING AND HALF A TABLET AT NIGHT
     Route: 048
  2. ASPIRIN. [Concomitant]
     Active Substance: ASPIRIN
     Indication: STENT PLACEMENT
     Route: 048
     Dates: start: 201611
  3. POTASSIUM CL [Concomitant]
     Active Substance: POTASSIUM CHLORIDE
     Indication: SUPPLEMENTATION THERAPY
     Route: 048
     Dates: start: 201611
  4. TYLENOL PM OTC [Concomitant]
     Indication: SLEEP DISORDER
     Route: 048
  5. BRILINTA [Suspect]
     Active Substance: TICAGRELOR
     Indication: STENT PLACEMENT
     Route: 048
     Dates: start: 201611, end: 201611
  6. BACLOFEN. [Concomitant]
     Active Substance: BACLOFEN
     Indication: HYPOTONIA
     Route: 048
  7. METOPROLOL TARTRATE. [Suspect]
     Active Substance: METOPROLOL TARTRATE
     Indication: CHEST PAIN
     Dosage: 12.5MG  HALF A TABLET IN MORNING AND HALF AT NIGHT
     Route: 048
  8. ATORVASTATIN [Concomitant]
     Active Substance: ATORVASTATIN
     Indication: BLOOD CHOLESTEROL
     Route: 048
     Dates: start: 201611
  9. CYMBALTA GENERIC [Concomitant]
     Active Substance: DULOXETINE HYDROCHLORIDE
     Indication: FIBROMYALGIA
     Dosage: CYMBALTA GENERIC 60MG IN THE MORNING AND 30MG AT NIGHT
     Route: 048
  10. CYMBALTA GENERIC [Concomitant]
     Active Substance: DULOXETINE HYDROCHLORIDE
     Indication: OSTEOARTHRITIS
     Dosage: CYMBALTA GENERIC 60MG IN THE MORNING AND 30MG AT NIGHT
     Route: 048

REACTIONS (6)
  - Mouth haemorrhage [Unknown]
  - Tongue haemorrhage [Unknown]
  - Intentional product misuse [Unknown]
  - Drug dose omission [Unknown]
  - Malaise [Unknown]
  - Swollen tongue [Unknown]

NARRATIVE: CASE EVENT DATE: 201611
